FAERS Safety Report 12199523 (Version 5)
Quarter: 2018Q4

REPORT INFORMATION
  Report Type: Spontaneous
  Country: US (occurrence: US)
  Receive Date: 20160322
  Receipt Date: 20181206
  Transmission Date: 20190204
  Serious: Yes (Hospitalization, Other)
  Sender: FDA-Public Use
  Company Number: US-ASTRAZENECA-2016SE28766

PATIENT
  Age: 891 Month
  Sex: Female
  Weight: 81.6 kg

DRUGS (9)
  1. METFORMIN [Concomitant]
     Active Substance: METFORMIN HYDROCHLORIDE
     Indication: TYPE 2 DIABETES MELLITUS
     Route: 048
  2. SIMVASTATIN. [Concomitant]
     Active Substance: SIMVASTATIN
     Route: 048
  3. BYETTA [Suspect]
     Active Substance: EXENATIDE
     Indication: TYPE 2 DIABETES MELLITUS
     Dosage: 0.25 MG/ML, 5 UG, TWO TIMES A DAY
     Route: 058
     Dates: start: 20070314
  4. BYETTA [Suspect]
     Active Substance: EXENATIDE
     Indication: TYPE 2 DIABETES MELLITUS
     Route: 058
     Dates: start: 20160919
  5. BYETTA [Suspect]
     Active Substance: EXENATIDE
     Indication: TYPE 2 DIABETES MELLITUS
     Dosage: 250 UG/ 1.2 ML, TWO TIMES A DAY
     Route: 058
     Dates: end: 20160310
  6. GLIPIZIDE. [Concomitant]
     Active Substance: GLIPIZIDE
     Indication: TYPE 2 DIABETES MELLITUS
     Route: 048
     Dates: start: 2003
  7. GLUCOPHAGE ^BRISTOL-MYERS SQUIBB^ [Concomitant]
     Indication: TYPE 2 DIABETES MELLITUS
     Route: 048
     Dates: start: 2004
  8. ATENOLOL. [Suspect]
     Active Substance: ATENOLOL
     Indication: CARDIAC DISORDER
     Route: 065
  9. ASPIRIN. [Concomitant]
     Active Substance: ASPIRIN
     Indication: CARDIAC DISORDER
     Route: 048

REACTIONS (16)
  - Mouth swelling [Unknown]
  - Blood glucose increased [Unknown]
  - Oral pain [Unknown]
  - Limb discomfort [Unknown]
  - Bone disorder [Unknown]
  - Product quality issue [Unknown]
  - Visual impairment [Unknown]
  - Injection site haemorrhage [Unknown]
  - Skin disorder [Not Recovered/Not Resolved]
  - Gingival cyst [Unknown]
  - Spinal column stenosis [Not Recovered/Not Resolved]
  - Headache [Unknown]
  - Arthritis [Not Recovered/Not Resolved]
  - Cough [Unknown]
  - Pain in extremity [Not Recovered/Not Resolved]
  - Chest pain [Recovered/Resolved]

NARRATIVE: CASE EVENT DATE: 200703
